FAERS Safety Report 7522489-1 (Version None)
Quarter: 2011Q2

REPORT INFORMATION
  Report Type: 
  Country: None (occurrence: None)
  Receive Date: 20110603
  Receipt Date: 20110523
  Transmission Date: 20111010
  Serious: Yes (Other)
  Sender: FDA-Public Use
  Company Number: GR-ROCHE-767224

PATIENT
  Age: 67 Year
  Sex: Male

DRUGS (3)
  1. BEVACIZUMAB [Suspect]
     Route: 065
     Dates: start: 20090901
  2. BEVACIZUMAB [Suspect]
     Indication: SMALL CELL LUNG CANCER METASTATIC
     Route: 065
     Dates: start: 20090101
  3. ZOLEDRONIC ACID [Suspect]
     Route: 042
     Dates: start: 20100201

REACTIONS (1)
  - GLOMERULONEPHRITIS PROLIFERATIVE [None]
